FAERS Safety Report 14203612 (Version 17)
Quarter: 2018Q2

REPORT INFORMATION
  Report Type: Spontaneous
  Country: CA (occurrence: CA)
  Receive Date: 20171120
  Receipt Date: 20180628
  Transmission Date: 20180711
  Serious: Yes (Hospitalization, Other)
  Sender: FDA-Public Use
  Company Number: CA-ORION CORPORATION ORION PHARMA-TREX2017-2471

PATIENT
  Age: 32 Year
  Sex: Female
  Weight: 58 kg

DRUGS (12)
  1. INFLECTRA [Suspect]
     Active Substance: INFLIXIMAB-DYYB
     Dosage: CYCLIC
     Route: 042
     Dates: start: 20180507
  2. SYNTHROID [Concomitant]
     Active Substance: LEVOTHYROXINE SODIUM
     Indication: THYROID DISORDER
     Dosage: IN THE MORNING
     Route: 048
     Dates: start: 2015
  3. INFLECTRA [Suspect]
     Active Substance: INFLIXIMAB-DYYB
     Dosage: CYCLIC
     Route: 042
     Dates: start: 20180618
  4. LEVEMIR [Concomitant]
     Active Substance: INSULIN DETEMIR
     Indication: TYPE 2 DIABETES MELLITUS
     Dosage: 10 IU DAILY (UP TO 10 UNITS, DAILY, AT BEDTIME)
     Route: 065
  5. NOVORAPID [Concomitant]
     Active Substance: INSULIN ASPART
     Indication: TYPE 2 DIABETES MELLITUS
     Dosage: 10 IU DAILY (UP TO 10 UNITS, DAILY, IN THE MORNING)
     Route: 065
  6. INFLECTRA [Suspect]
     Active Substance: INFLIXIMAB-DYYB
     Indication: CROHN^S DISEASE
     Dosage: EVERY 0, 2, 6 WEEKS, THEN EVERY 8 WEEKS
     Route: 042
     Dates: start: 20170705, end: 20171122
  7. INFLECTRA [Suspect]
     Active Substance: INFLIXIMAB-DYYB
     Route: 042
  8. INFLECTRA [Suspect]
     Active Substance: INFLIXIMAB-DYYB
     Dosage: CYCLIC
     Route: 042
     Dates: start: 20180409
  9. MELATONIN [Concomitant]
     Active Substance: MELATONIN
     Indication: SLEEP DISORDER
     Dosage: AT NIGHT
     Route: 048
     Dates: start: 20170405
  10. INFLECTRA [Suspect]
     Active Substance: INFLIXIMAB-DYYB
     Dosage: CYCLIC
     Route: 042
     Dates: start: 20171122, end: 20171122
  11. INFLECTRA [Suspect]
     Active Substance: INFLIXIMAB-DYYB
     Dosage: CYCLIC
     Route: 042
     Dates: start: 20180308
  12. METHOTREXATE (TRADE NAME UNKNOWN) [Suspect]
     Active Substance: METHOTREXATE
     Indication: PRODUCT USED FOR UNKNOWN INDICATION
     Route: 048
     Dates: start: 20170705

REACTIONS (24)
  - Diarrhoea haemorrhagic [Unknown]
  - Malaise [Not Recovered/Not Resolved]
  - Bone pain [Unknown]
  - Uveitis [Unknown]
  - Neck pain [Unknown]
  - Influenza like illness [Recovered/Resolved]
  - Nasopharyngitis [Recovered/Resolved]
  - Fatigue [Unknown]
  - Feeling cold [Recovered/Resolved]
  - Musculoskeletal pain [Unknown]
  - Pus in stool [Unknown]
  - Abdominal pain [Unknown]
  - Dizziness [Not Recovered/Not Resolved]
  - Drug ineffective [Unknown]
  - Pyrexia [Recovered/Resolved]
  - Arthralgia [Unknown]
  - Anaemia [Unknown]
  - Confusional state [Not Recovered/Not Resolved]
  - Memory impairment [Not Recovered/Not Resolved]
  - Crohn^s disease [Unknown]
  - Back pain [Recovered/Resolved]
  - Pain [Not Recovered/Not Resolved]
  - Anal fissure [Unknown]
  - Chills [Not Recovered/Not Resolved]

NARRATIVE: CASE EVENT DATE: 2017
